FAERS Safety Report 9452498 (Version 2)
Quarter: 2013Q3

REPORT INFORMATION
  Report Type: Spontaneous
  Country: US (occurrence: US)
  Receive Date: 20130812
  Receipt Date: 20130918
  Transmission Date: 20140515
  Serious: No
  Sender: FDA-Public Use
  Company Number: US-PFIZER INC-2013229600

PATIENT
  Sex: Female

DRUGS (1)
  1. PROCARDIA [Suspect]
     Dosage: 1 DF, UNK

REACTIONS (5)
  - Headache [Unknown]
  - Visual brightness [Unknown]
  - Gait disturbance [Unknown]
  - Dyspnoea [Unknown]
  - Hypertension [Unknown]
